FAERS Safety Report 8047278-3 (Version None)
Quarter: 2012Q1

REPORT INFORMATION
  Report Type: 
  Country: None (occurrence: None)
  Receive Date: 20120116
  Receipt Date: 20120102
  Transmission Date: 20120608
  Serious: Yes (Hospitalization)
  Sender: FDA-Public Use
  Company Number: FR-SANOFI-AVENTIS-2012SA000481

PATIENT
  Age: 83 Year
  Sex: Female

DRUGS (7)
  1. NEXIUM [Concomitant]
     Dates: start: 20110727
  2. PLAVIX [Suspect]
     Route: 048
     Dates: start: 20110811, end: 20110827
  3. ASPIRIN [Concomitant]
     Dates: start: 20110727
  4. POLYETHYLENE GLYCOL [Concomitant]
     Dates: start: 20110815
  5. MOTILIUM [Suspect]
     Route: 048
     Dates: start: 20110820, end: 20110829
  6. ECONAZOLE NITRATE [Concomitant]
     Dates: start: 20110728, end: 20110826
  7. COLCHICINE [Concomitant]
     Dates: start: 20110802, end: 20110823

REACTIONS (1)
  - ACUTE GENERALISED EXANTHEMATOUS PUSTULOSIS [None]
